FAERS Safety Report 14736454 (Version 1)
Quarter: 2018Q2

REPORT INFORMATION
  Report Type: Spontaneous
  Country: US (occurrence: US)
  Receive Date: 20180403
  Receipt Date: 20180403
  Transmission Date: 20180711
  Serious: Yes (Death, Hospitalization)
  Sender: FDA-Public Use
  Company Number: None

PATIENT
  Age: 4 Year
  Sex: Male
  Weight: 20.7 kg

DRUGS (2)
  1. KYMRIAH [Suspect]
     Active Substance: TISAGENLECLEUCEL
     Indication: B-CELL TYPE ACUTE LEUKAEMIA
     Dosage: ?          OTHER DOSE:3.3 X 10^6 CAR-T V;?
     Route: 042
  2. KYMRIAH [Suspect]
     Active Substance: TISAGENLECLEUCEL
     Indication: LEUKAEMIA RECURRENT
     Dosage: ?          OTHER DOSE:3.3 X 10^6 CAR-T V;?
     Route: 042

REACTIONS (12)
  - Febrile neutropenia [None]
  - Tumour lysis syndrome [None]
  - Haemolysis [None]
  - Haemorrhage intracranial [None]
  - Respiratory failure [None]
  - Cytokine release syndrome [None]
  - Coagulopathy [None]
  - Neurotoxicity [None]
  - Hypotension [None]
  - Hypertension [None]
  - Acute kidney injury [None]
  - Haemolytic anaemia [None]

NARRATIVE: CASE EVENT DATE: 20180320
